FAERS Safety Report 7709444-3 (Version None)
Quarter: 2011Q3

REPORT INFORMATION
  Report Type: 
  Country: None (occurrence: None)
  Receive Date: 20110825
  Receipt Date: 20110812
  Transmission Date: 20111222
  Serious: Yes (Hospitalization, Other)
  Sender: FDA-Public Use
  Company Number: US-BAYER-2011-023374

PATIENT
  Age: 30 Year
  Sex: Female
  Weight: 63.492 kg

DRUGS (8)
  1. ALLEGRA D 24 HOUR [Concomitant]
     Dosage: UNK
     Dates: start: 20070517
  2. YASMIN [Suspect]
     Indication: ORAL CONTRACEPTION
     Dosage: UNK
     Route: 048
     Dates: start: 20050701, end: 20070501
  3. YAZ [Suspect]
     Indication: ORAL CONTRACEPTION
     Dosage: UNK
     Dates: start: 20050701, end: 20070501
  4. CRANTEX LA [Concomitant]
     Dosage: UNK
     Dates: start: 20070530
  5. CEFPROZIL [Concomitant]
     Dosage: 250 UNK, UNK
     Dates: start: 20070530
  6. ZYRTEC [Concomitant]
     Dosage: 10 MG, UNK
     Dates: start: 20070517
  7. CEFPODOXIME PROXETIL [Concomitant]
     Dosage: 200 MG, UNK
     Dates: start: 20070517
  8. PROMETHAZINE [Concomitant]
     Dosage: 25 MG, UNK
     Dates: start: 20070521

REACTIONS (5)
  - ANHEDONIA [None]
  - INJURY [None]
  - ANXIETY [None]
  - SPLENIC INFARCTION [None]
  - PAIN [None]
